FAERS Safety Report 5399711-3 (Version None)
Quarter: 2007Q3

REPORT INFORMATION
  Report Type: 
  Country: None (occurrence: None)
  Receive Date: 20070727
  Receipt Date: 20070723
  Transmission Date: 20080115
  Serious: Yes (Life-Threatening, Hospitalization)
  Sender: FDA-Public Use
  Company Number: US-MERCK-0707USA03794

PATIENT
  Sex: Female

DRUGS (3)
  1. JANUVIA [Suspect]
     Indication: TYPE 2 DIABETES MELLITUS
     Route: 048
     Dates: start: 20070101, end: 20070101
  2. CRESTOR [Concomitant]
     Route: 065
     Dates: end: 20070101
  3. [THERAPY UNSPECIFIED] [Concomitant]
     Indication: ANGIOTENSIN CONVERTING ENZYME INHIBITOR FOETOPATHY
     Route: 065
     Dates: end: 20070101

REACTIONS (2)
  - PANCREATITIS [None]
  - RENAL FAILURE [None]
